FAERS Safety Report 14325288 (Version 6)
Quarter: 2020Q4

REPORT INFORMATION
  Report Type: Spontaneous
  Country: US (occurrence: US)
  Receive Date: 20171226
  Receipt Date: 20201028
  Transmission Date: 20210113
  Serious: Yes (Congenital Anomaly, Other)
  Sender: FDA-Public Use
  Company Number: PHEH2017US041559

PATIENT
  Sex: Female

DRUGS (2)
  1. ZOFRAN ODT [Suspect]
     Active Substance: ONDANSETRON HYDROCHLORIDE
     Indication: FOETAL EXPOSURE DURING PREGNANCY
     Route: 064
  2. ZOFRAN [Suspect]
     Active Substance: ONDANSETRON HYDROCHLORIDE
     Indication: FOETAL EXPOSURE DURING PREGNANCY
     Route: 064

REACTIONS (56)
  - Otospondylomegaepiphyseal dysplasia [Unknown]
  - Developmental delay [Unknown]
  - Otitis media chronic [Recovered/Resolved]
  - Rash [Unknown]
  - Cough [Unknown]
  - Candida infection [Unknown]
  - Wheezing [Unknown]
  - Viral infection [Unknown]
  - Arthralgia [Unknown]
  - Otitis media [Unknown]
  - Disturbance in attention [Unknown]
  - Cyanosis neonatal [Unknown]
  - Rhinorrhoea [Unknown]
  - Hypoacusis [Unknown]
  - Swelling [Unknown]
  - Headache [Unknown]
  - Dry mouth [Unknown]
  - Pharyngitis [Unknown]
  - Oropharyngeal pain [Unknown]
  - Pain [Unknown]
  - Sleep apnoea syndrome [Unknown]
  - Influenza [Unknown]
  - Upper respiratory tract infection [Unknown]
  - Toe walking [Unknown]
  - Abdominal pain upper [Unknown]
  - Lethargy [Unknown]
  - Snoring [Unknown]
  - Memory impairment [Unknown]
  - Cognitive disorder [Unknown]
  - Cleft palate [Unknown]
  - Choking [Unknown]
  - Injury [Unknown]
  - Pyrexia [Unknown]
  - Gastroenteritis [Unknown]
  - Wrist fracture [Unknown]
  - Rhinitis allergic [Unknown]
  - Lacrimation increased [Unknown]
  - Ecchymosis [Unknown]
  - Nausea [Unknown]
  - Eustachian tube dysfunction [Unknown]
  - Attention deficit hyperactivity disorder [Unknown]
  - Hypotonia neonatal [Unknown]
  - Foetal exposure during pregnancy [Unknown]
  - Decreased appetite [Unknown]
  - Dyspnoea [Unknown]
  - Ear pain [Unknown]
  - Ear discomfort [Unknown]
  - Learning disability [Unknown]
  - Central auditory processing disorder [Unknown]
  - Fatigue [Unknown]
  - Visual impairment [Unknown]
  - Cardiac murmur [Unknown]
  - Retrognathia [Unknown]
  - Mouth breathing [Unknown]
  - Eczema [Unknown]
  - Feeding disorder [Unknown]
